FAERS Safety Report 7461125-X (Version None)
Quarter: 2011Q2

REPORT INFORMATION
  Report Type: 
  Country: None (occurrence: None)
  Receive Date: 20110505
  Receipt Date: 20110428
  Transmission Date: 20111010
  Serious: Yes (Other)
  Sender: FDA-Public Use
  Company Number: JP-ASTRAZENECA-2011SE13286

PATIENT
  Age: 11356 Day
  Sex: Female

DRUGS (2)
  1. SEROQUEL [Suspect]
     Indication: DEPRESSION
     Route: 048
     Dates: start: 20110218, end: 20110301
  2. MEILAX [Concomitant]
     Indication: DEPRESSION
     Dates: start: 20110218, end: 20110301

REACTIONS (1)
  - ERYTHEMA MULTIFORME [None]
